FAERS Safety Report 5809393-1 (Version None)
Quarter: 2008Q3

REPORT INFORMATION
  Report Type: 
  Country: None (occurrence: None)
  Receive Date: 20080714
  Receipt Date: 20080709
  Transmission Date: 20090109
  Serious: Yes (Death, Hospitalization)
  Sender: FDA-Public Use
  Company Number: PHHY2008JP11464

PATIENT
  Sex: Male
  Weight: 161 kg

DRUGS (12)
  1. VALSARTAN [Suspect]
     Dosage: UNK
     Dates: end: 20070126
  2. AMLODIPINE BESYLATE [Suspect]
  3. BENIDIPINE HYDROCHLORIDE [Concomitant]
  4. GASTROM [Concomitant]
     Dosage: UNK
     Route: 048
     Dates: end: 20070126
  5. MEILAX [Concomitant]
     Dosage: UNK
     Route: 048
     Dates: end: 20070126
  6. CRAVIT [Concomitant]
     Dosage: UNK
     Route: 048
     Dates: end: 20070126
  7. SOLANTAL [Concomitant]
     Dosage: UNK
     Route: 048
     Dates: end: 20070126
  8. OPALMON [Concomitant]
     Dosage: UNK
     Route: 048
     Dates: end: 20070126
  9. ZHITHROMAC [Concomitant]
  10. MEDICON [Suspect]
  11. PERIACTIN [Concomitant]
  12. HUSTAGIN [Concomitant]

REACTIONS (11)
  - ACUTE MYOCARDIAL INFARCTION [None]
  - C-REACTIVE PROTEIN INCREASED [None]
  - CHEST X-RAY ABNORMAL [None]
  - DYSPNOEA [None]
  - INTERSTITIAL LUNG DISEASE [None]
  - LUNG INJURY [None]
  - LYMPHOCYTE STIMULATION TEST [None]
  - OXYGEN CONSUMPTION [None]
  - OXYGEN SATURATION DECREASED [None]
  - PRODUCTIVE COUGH [None]
  - PYREXIA [None]
